FAERS Safety Report 25327402 (Version 7)
Quarter: 2025Q4

REPORT INFORMATION
  Report Type: Spontaneous
  Country: EU (occurrence: EU)
  Receive Date: 20250517
  Receipt Date: 20251118
  Transmission Date: 20260118
  Serious: Yes (Hospitalization, Disabling, Other)
  Sender: AUROBINDO
  Company Number: EU-RECORDATI-2025002421

PATIENT
  Age: 86 Year
  Sex: Female

DRUGS (30)
  1. CITALOPRAM [Suspect]
     Active Substance: CITALOPRAM
     Indication: Product used for unknown indication
     Dosage: 40 MILLIGRAM, ONCE A DAY, (DOSE REDUCED FROM 40 MG TO 20 MG)
     Route: 065
  2. CITALOPRAM [Suspect]
     Active Substance: CITALOPRAM
     Dosage: 20 MILLIGRAM, ONCE A DAY,  (DOSE REDUCED FROM 40 MG TO 20 MG)
     Route: 065
  3. HYDROCHLOROTHIAZIDE\RAMIPRIL [Suspect]
     Active Substance: HYDROCHLOROTHIAZIDE\RAMIPRIL
     Indication: Hypertension
     Dosage: 50 MILLIGRAM, DAILY
     Route: 065
  4. HYDROCHLOROTHIAZIDE\RAMIPRIL [Suspect]
     Active Substance: HYDROCHLOROTHIAZIDE\RAMIPRIL
     Indication: Blood pressure measurement
  5. PANTOPRAZOLE [Suspect]
     Active Substance: PANTOPRAZOLE
     Indication: Product used for unknown indication
     Dosage: 40 MILLIGRAM, ONCE A DAY,(DOSE REDUCED FROM 40 MG TO 20 MG)
     Route: 065
  6. PANTOPRAZOLE [Suspect]
     Active Substance: PANTOPRAZOLE
     Dosage: 20 MILLIGRAM, ONCE A DAY,(DOSE REDUCED FROM 40 MG TO 20 MG)
     Route: 065
  7. NALOXONE HYDROCHLORIDE [Suspect]
     Active Substance: NALOXONE HYDROCHLORIDE
     Indication: Product used for unknown indication
     Dosage: UNK
     Route: 065
  8. SIMVASTATIN [Suspect]
     Active Substance: SIMVASTATIN
     Indication: Product used for unknown indication
     Dosage: UNK
     Route: 065
  9. SITAGLIPTIN [Suspect]
     Active Substance: SITAGLIPTIN
     Indication: Product used for unknown indication
     Dosage: 100 MILLIGRAM, ONCE A DAY
     Route: 065
  10. SITAGLIPTIN [Suspect]
     Active Substance: SITAGLIPTIN
     Dosage: 50 MILLIGRAM, ONCE A DAY
     Route: 065
  11. HYDROCHLOROTHIAZIDE [Suspect]
     Active Substance: HYDROCHLOROTHIAZIDE
     Indication: Hypertension
     Dosage: 50 MILLIGRAM, ONCE A DAY
     Route: 065
  12. HYDROCHLOROTHIAZIDE [Suspect]
     Active Substance: HYDROCHLOROTHIAZIDE
     Dosage: UNK
     Route: 065
  13. METFORMIN [Suspect]
     Active Substance: METFORMIN HYDROCHLORIDE
     Indication: Product used for unknown indication
     Dosage: 1700 MILLIGRAM [2X 850 MG]
     Route: 065
  14. METFORMIN [Suspect]
     Active Substance: METFORMIN HYDROCHLORIDE
     Dosage: 1000 MILLIGRAM [2 X 500 MG]
     Route: 065
  15. METFORMIN [Suspect]
     Active Substance: METFORMIN HYDROCHLORIDE
     Dosage: UNK
     Route: 065
  16. TORSEMIDE [Suspect]
     Active Substance: TORSEMIDE
     Indication: Hypertension
     Dosage: UNK
     Route: 065
  17. TORSEMIDE [Suspect]
     Active Substance: TORSEMIDE
     Indication: Blood pressure measurement
  18. METOPROLOL [Suspect]
     Active Substance: METOPROLOL
     Indication: Blood pressure measurement
     Dosage: 40 MILLIGRAM
     Route: 065
  19. METOPROLOL [Suspect]
     Active Substance: METOPROLOL
     Indication: Hypertension
     Dosage: 20 MILLIGRAM
     Route: 065
  20. METOPROLOL [Suspect]
     Active Substance: METOPROLOL
     Dosage: UNK
     Route: 065
  21. BISOPROLOL [Suspect]
     Active Substance: BISOPROLOL
     Indication: Hypertension
     Dosage: UNK
     Route: 065
  22. CINNARIZINE [Suspect]
     Active Substance: CINNARIZINE
     Indication: Dizziness
     Dosage: UNK
     Route: 065
  23. PROMETHAZINE [Suspect]
     Active Substance: PROMETHAZINE HYDROCHLORIDE
     Indication: Product used for unknown indication
     Dosage: UNK
     Route: 065
  24. DIMENHYDRINATE [Suspect]
     Active Substance: DIMENHYDRINATE
     Indication: Dizziness
     Dosage: UNK
     Route: 065
  25. TILIDINE [Suspect]
     Active Substance: TILIDINE
     Indication: Product used for unknown indication
     Dosage: UNK
     Route: 065
  26. PROPIVERINE [Concomitant]
     Active Substance: PROPIVERINE
     Indication: Product used for unknown indication
     Dosage: UNK
     Route: 065
  27. Schwedentabletten [Concomitant]
     Indication: Product used for unknown indication
     Dosage: UNK
     Route: 065
  28. ALLOPURINOL [Concomitant]
     Active Substance: ALLOPURINOL
     Indication: Product used for unknown indication
     Dosage: UNK
     Route: 065
  29. SITAGLIPTIN [Concomitant]
     Active Substance: SITAGLIPTIN
     Indication: Product used for unknown indication
     Dosage: 850 MILLIGRAM (FIRST TWICE 850 MG, REDUCED TO TWICE 500 MG)
     Route: 065
  30. SITAGLIPTIN [Concomitant]
     Active Substance: SITAGLIPTIN
     Dosage: 500 MILLIGRAM (FIRST TWICE 850 MG, REDUCED TO TWICE 500 MG)
     Route: 065

REACTIONS (18)
  - Craniofacial fracture [Recovered/Resolved]
  - Inappropriate antidiuretic hormone secretion [Recovered/Resolved]
  - Fall [Recovered/Resolved]
  - Medication error [Recovered/Resolved]
  - Contusion [Recovered/Resolved]
  - Mobility decreased [Recovered/Resolved]
  - Renal impairment [Unknown]
  - Immobile [Unknown]
  - Hyponatraemia [Recovered/Resolved]
  - Lethargy [Recovered/Resolved]
  - Blood pressure decreased [Unknown]
  - Dizziness [Recovered/Resolved]
  - Constipation [Recovered/Resolved]
  - Fatigue [Recovered/Resolved]
  - Dysphagia [Recovered/Resolved]
  - Prescribed overdose [Recovered/Resolved]
  - Fear of falling [Unknown]
  - Incorrect dose administered [Unknown]
